FAERS Safety Report 8606050 (Version 2)
Quarter: 2013Q2

REPORT INFORMATION
  Report Type: Spontaneous
  Country: US (occurrence: US)
  Receive Date: 20120608
  Receipt Date: 20130425
  Transmission Date: 20140414
  Serious: No
  Sender: FDA-Public Use
  Company Number: US-ASTRAZENECA-2012SE07959

PATIENT
  Age: 54 Year
  Sex: Male

DRUGS (5)
  1. ATACAND [Suspect]
     Route: 048
  2. ZESTRIL [Suspect]
     Route: 048
  3. HYDROCHLOROTHIAZIDE [Suspect]
  4. EQUATE [Suspect]
  5. SCHIFF GLUCOSAMINE+MSM [Suspect]

REACTIONS (2)
  - Hypertension [Unknown]
  - Cough [Unknown]
